FAERS Safety Report 4764031-4 (Version None)
Quarter: 2005Q3

REPORT INFORMATION
  Report Type: 
  Country: None (occurrence: None)
  Receive Date: 20050908
  Receipt Date: 20041117
  Transmission Date: 20060218
  Serious: Yes (Hospitalization, Disabling)
  Sender: FDA-Public Use
  Company Number: US-MERCK-0411USA02866

PATIENT
  Age: 69 Year
  Sex: Male
  Weight: 136 kg

DRUGS (1)
  1. VIOXX [Suspect]
     Indication: ARTHRITIS
     Route: 048
     Dates: start: 20010403, end: 20040801

REACTIONS (25)
  - ACTIVITIES OF DAILY LIVING IMPAIRED [None]
  - ANGINA UNSTABLE [None]
  - ARTHROPATHY [None]
  - ASTHENIA [None]
  - ATRIOVENTRICULAR BLOCK FIRST DEGREE [None]
  - CARDIAC FAILURE [None]
  - CARDIOMEGALY [None]
  - CATARACT [None]
  - CATARACT OPERATION [None]
  - CONDITION AGGRAVATED [None]
  - CORONARY ARTERY DISEASE [None]
  - CORONARY ARTERY OCCLUSION [None]
  - CORONARY ARTERY STENOSIS [None]
  - DIFFICULTY IN WALKING [None]
  - DIZZINESS [None]
  - ERECTILE DYSFUNCTION [None]
  - GROIN PAIN [None]
  - HIP ARTHROPLASTY [None]
  - HYPERTENSION [None]
  - JOINT STIFFNESS [None]
  - LOCALISED INFECTION [None]
  - MYOCARDIAL INFARCTION [None]
  - ORTHOSTATIC HYPOTENSION [None]
  - RECTAL HAEMORRHAGE [None]
  - STAPHYLOCOCCAL INFECTION [None]
